FAERS Safety Report 5430017-X (Version None)
Quarter: 2007Q3

REPORT INFORMATION
  Report Type: 
  Country: None (occurrence: None)
  Receive Date: 20070829
  Receipt Date: 20070817
  Transmission Date: 20080115
  Serious: Yes (Hospitalization)
  Sender: FDA-Public Use
  Company Number: JP-PFIZER INC-2007065232

PATIENT
  Sex: Female
  Weight: 50 kg

DRUGS (5)
  1. AZULFIDINE EN-TABS [Suspect]
     Indication: RHEUMATOID ARTHRITIS
     Route: 048
     Dates: start: 20070516, end: 20070629
  2. ACTONEL [Concomitant]
     Indication: OSTEOPOROSIS
     Dosage: DAILY DOSE:2.5MG
     Route: 048
     Dates: start: 20070404, end: 20070702
  3. MOBIC [Concomitant]
     Dosage: DAILY DOSE:10MG
     Route: 048
     Dates: start: 20070404, end: 20070702
  4. MUCOSTA [Concomitant]
     Indication: GASTRITIS
     Dosage: DAILY DOSE:100MG
     Route: 048
     Dates: start: 20070404, end: 20070702
  5. CATLEP [Concomitant]
     Dates: start: 20070404, end: 20070702

REACTIONS (1)
  - DRUG ERUPTION [None]
